FAERS Safety Report 6618206-X (Version None)
Quarter: 2010Q1

REPORT INFORMATION
  Report Type: 
  Country: None (occurrence: None)
  Receive Date: 20100308
  Receipt Date: 20100226
  Transmission Date: 20100710
  Serious: Yes (Hospitalization)
  Sender: FDA-Public Use
  Company Number: US-PFIZER INC-2009273867

PATIENT
  Sex: Female
  Weight: 55.3 kg

DRUGS (20)
  1. AXITINIB [Suspect]
     Indication: COLORECTAL CANCER METASTATIC
     Dosage: 2 MG, 2X/DAY
     Route: 048
     Dates: start: 20080818
  2. AXITINIB [Suspect]
     Dosage: 2 MG, 1X/DAY
     Dates: start: 20090920, end: 20090920
  3. WELLCOVORIN [Suspect]
     Indication: COLORECTAL CANCER METASTATIC
     Dosage: 616 MG, EVERY TWO WEEKS
     Route: 042
     Dates: start: 20080818, end: 20090916
  4. FLUOROURACIL [Suspect]
     Indication: COLORECTAL CANCER METASTATIC
     Dosage: 615 MG, EVERY TWO WEEKS BLOUS
     Route: 042
     Dates: start: 20080818, end: 20090916
  5. FLUOROURACIL [Suspect]
     Dosage: 3695 MG, EVERY TWO WEEKS, 46-48 INFUSION
     Route: 042
     Dates: start: 20080818, end: 20090918
  6. IRINOTECAN HCL [Suspect]
     Indication: COLORECTAL CANCER METASTATIC
     Dosage: 277 MG, EVERY TWO WEEKS
     Route: 042
     Dates: start: 20090902, end: 20090916
  7. HYDROCHLOROTHIAZIDE [Concomitant]
     Indication: HYPERTENSION
     Dosage: UNK
     Dates: start: 20070730
  8. ATIVAN [Concomitant]
     Indication: PROPHYLACTIC CHEMOTHERAPY
     Dosage: UNK
     Dates: start: 20080818
  9. ZOFRAN [Concomitant]
     Indication: PROPHYLACTIC CHEMOTHERAPY
     Dosage: UNK
     Dates: start: 20080818
  10. COMPAZINE [Concomitant]
     Indication: NAUSEA
     Dosage: UNK
     Dates: start: 20080829
  11. SIMETHICONE [Concomitant]
     Indication: ABDOMINAL DISTENSION
     Dosage: UNK
     Dates: start: 20081001
  12. POTASSIUM CHLORIDE [Concomitant]
     Indication: HYPOKALAEMIA
     Dosage: UNK
     Dates: start: 20081001
  13. SYNTHROID [Concomitant]
     Indication: HYPOTHYROIDISM
     Dosage: UNK
     Dates: start: 20081112
  14. HYDROCODONE [Concomitant]
     Indication: ABDOMINAL PAIN
     Dosage: UNK
     Dates: start: 20090226
  15. MILK OF MAGNESIA TAB [Concomitant]
     Indication: CONSTIPATION
     Dosage: UNK
     Dates: start: 20090610
  16. SODIUM CHLORIDE [Concomitant]
     Indication: POSTNASAL DRIP
     Dosage: UNK
     Dates: start: 20090624
  17. ATENOLOL [Concomitant]
     Indication: HYPERTENSION
     Dosage: UNK
     Dates: start: 20081014
  18. CODEINE W/GUAIFENESIN [Concomitant]
     Indication: COUGH
     Dosage: UNK
     Dates: start: 20090821
  19. ALOXI [Concomitant]
     Indication: ANTIEMETIC SUPPORTIVE CARE
     Dosage: UNK
     Dates: start: 20090902
  20. ATROPINE [Concomitant]
     Indication: PROPHYLACTIC CHEMOTHERAPY
     Dosage: UNK
     Dates: start: 20090902

REACTIONS (1)
  - PNEUMONIA [None]
